FAERS Safety Report 7880990-5 (Version None)
Quarter: 2011Q4

REPORT INFORMATION
  Report Type: 
  Country: None (occurrence: None)
  Receive Date: 20111101
  Receipt Date: 20111026
  Transmission Date: 20120403
  Serious: Yes (Hospitalization, Disabling)
  Sender: FDA-Public Use
  Company Number: US-MERCK-1106USA01826

PATIENT
  Age: 72 Year
  Sex: Female

DRUGS (7)
  1. FOSAMAX [Suspect]
     Indication: OSTEOPOROSIS
     Route: 048
     Dates: start: 19980101, end: 20070601
  2. DIDRONEL [Concomitant]
     Indication: OSTEOPOROSIS PROPHYLAXIS
     Route: 065
  3. BONIVA [Concomitant]
     Indication: OSTEOPOROSIS
     Route: 048
     Dates: start: 20070601, end: 20080401
  4. BONIVA [Concomitant]
     Indication: OSTEOPOROSIS PROPHYLAXIS
     Route: 048
     Dates: start: 20070601, end: 20080401
  5. FOSAMAX [Suspect]
     Indication: OSTEOPOROSIS PROPHYLAXIS
     Route: 048
     Dates: start: 19980101, end: 20070601
  6. RECLAST [Concomitant]
     Indication: OSTEOPOROSIS PROPHYLAXIS
     Route: 041
     Dates: start: 20080422, end: 20090427
  7. RECLAST [Concomitant]
     Indication: OSTEOPOROSIS
     Route: 041
     Dates: start: 20080422, end: 20090427

REACTIONS (3)
  - FRACTURE DELAYED UNION [None]
  - GASTROINTESTINAL STROMAL TUMOUR [None]
  - FEMUR FRACTURE [None]
